FAERS Safety Report 9700825 (Version 1)
Quarter: 2013Q4

REPORT INFORMATION
  Report Type: Spontaneous
  Country: US (occurrence: US)
  Receive Date: 20131121
  Receipt Date: 20131121
  Transmission Date: 20140711
  Serious: No
  Sender: FDA-Public Use
  Company Number: US-VERTEX PHARMACEUTICALS INC-2013-011236

PATIENT
  Age: 52 Year
  Sex: Female
  Weight: 101 kg

DRUGS (4)
  1. INCIVEK [Suspect]
     Indication: HEPATITIS C
     Dosage: 750 MG, TID
     Route: 048
     Dates: start: 20131028
  2. RIBAVIRIN [Suspect]
     Indication: HEPATITIS C
     Dosage: 600 MG AM 400 MG PM
     Dates: start: 20131028
  3. RIBAVIRIN [Suspect]
     Dosage: 600 MG, BID
     Dates: start: 20131119
  4. PEGASYS [Suspect]
     Indication: HEPATITIS C
     Dosage: 180 ?G, QW
     Route: 058
     Dates: start: 20131028

REACTIONS (1)
  - Weight increased [Not Recovered/Not Resolved]
